FAERS Safety Report 18313774 (Version 2)
Quarter: 2020Q4

REPORT INFORMATION
  Report Type: Spontaneous
  Country: JP (occurrence: JP)
  Receive Date: 20200925
  Receipt Date: 20201030
  Transmission Date: 20210113
  Serious: Yes (Life-Threatening, Hospitalization, Other)
  Sender: FDA-Public Use
  Company Number: JP-JNJFOC-20200936972

PATIENT
  Age: 81 Year
  Sex: Male
  Weight: 43.2 kg

DRUGS (10)
  1. LYRICA [Concomitant]
     Active Substance: PREGABALIN
     Dosage: DAILY DOSE 300 MG
     Route: 048
  2. PLAVIX [Interacting]
     Active Substance: CLOPIDOGREL BISULFATE
     Indication: ANGINA PECTORIS
     Dosage: DAILY DOSE 75 MG
     Route: 048
     Dates: start: 20200608, end: 20200827
  3. TAKECAB [Concomitant]
     Active Substance: VONOPRAZAN FUMARATE
  4. LOXONIN [Concomitant]
     Active Substance: LOXOPROFEN SODIUM
     Dosage: DAILY DOSE 120 MG
     Route: 048
  5. GASMOTIN [Concomitant]
     Active Substance: MOSAPRIDE CITRATE
     Dosage: DAILY DOSE 15 MG
     Route: 048
  6. XARELTO [Suspect]
     Active Substance: RIVAROXABAN
     Indication: ATRIAL FIBRILLATION
     Dosage: 10 MG, QD
     Route: 048
     Dates: start: 20200609, end: 20200827
  7. TRADIANCE [Concomitant]
     Active Substance: EMPAGLIFLOZIN\LINAGLIPTIN
     Indication: TYPE 2 DIABETES MELLITUS
     Route: 048
  8. VASOLAN [VERAPAMIL HYDROCHLORIDE] [Concomitant]
     Active Substance: VERAPAMIL HYDROCHLORIDE
     Dosage: DAILY DOSE 80 MG
     Route: 048
  9. GOOFICE [Concomitant]
     Active Substance: ELOBIXIBAT
     Dosage: DAILY DOSE 10 MG
     Route: 048
  10. SENNOSIDE A [Concomitant]
     Active Substance: SENNOSIDE A
     Dosage: DAILY DOSE 24 MG
     Route: 048

REACTIONS (4)
  - Pneumonia [Unknown]
  - Chronic kidney disease [Unknown]
  - Labelled drug-drug interaction medication error [Unknown]
  - Upper gastrointestinal haemorrhage [Recovered/Resolved]

NARRATIVE: CASE EVENT DATE: 202008
